FAERS Safety Report 24708383 (Version 2)
Quarter: 2025Q1

REPORT INFORMATION
  Report Type: Other
  Country: PT (occurrence: PT)
  Receive Date: 20241207
  Receipt Date: 20250110
  Transmission Date: 20250408
  Serious: Yes (Disabling)
  Sender: BIOCON
  Company Number: None

PATIENT

DRUGS (7)
  1. PEGFILGRASTIM [Suspect]
     Active Substance: PEGFILGRASTIM
     Indication: Invasive breast carcinoma
     Dosage: 6 MILLIGRAM, Q3W, Q21 DAYS, SC
     Route: 058
     Dates: start: 20240903
  2. TRASTUZUMAB [Suspect]
     Active Substance: TRASTUZUMAB
     Indication: Invasive breast carcinoma
     Route: 042
     Dates: start: 20240902
  3. PERJETA [Suspect]
     Active Substance: PERTUZUMAB
     Indication: Invasive breast carcinoma
     Dosage: 420 MILLIGRAM, Q3W, EVERY 21 DAYS
     Route: 065
     Dates: start: 20240902
  4. GRANISETRON HYDROCHLORIDE [Suspect]
     Active Substance: GRANISETRON HYDROCHLORIDE
     Indication: Invasive breast carcinoma
     Route: 065
     Dates: start: 20240902
  5. DEXAMETHASONE [Suspect]
     Active Substance: DEXAMETHASONE
     Indication: Invasive breast carcinoma
     Route: 065
     Dates: start: 20240902
  6. DOCETAXEL [Suspect]
     Active Substance: DOCETAXEL
     Indication: Invasive breast carcinoma
     Route: 042
     Dates: start: 20240902
  7. CARBOPLATIN [Suspect]
     Active Substance: CARBOPLATIN
     Indication: Invasive breast carcinoma
     Route: 065
     Dates: start: 20240902

REACTIONS (2)
  - Diarrhoea [Recovered/Resolved]
  - Malaise [Recovered/Resolved]

NARRATIVE: CASE EVENT DATE: 20241110
